FAERS Safety Report 5286055-3 (Version None)
Quarter: 2007Q2

REPORT INFORMATION
  Report Type: 
  Country: None (occurrence: None)
  Receive Date: 20070404
  Receipt Date: 20070328
  Transmission Date: 20071010
  Serious: Yes (Death, Other)
  Sender: FDA-Public Use
  Company Number: US-BRISTOL-MYERS SQUIBB COMPANY-13732011

PATIENT

DRUGS (9)
  1. ETOPOSIDE [Suspect]
     Indication: SMALL CELL LUNG CANCER STAGE UNSPECIFIED
  2. CISPLATIN [Suspect]
     Indication: SMALL CELL LUNG CANCER STAGE UNSPECIFIED
  3. PACLITAXEL [Suspect]
     Indication: SMALL CELL LUNG CANCER STAGE UNSPECIFIED
  4. GRANULOCYTE CSF [Concomitant]
  5. DEXAMETHASONE [Concomitant]
     Indication: PREMEDICATION
  6. DIPHENHYDRAMINE HCL [Concomitant]
     Indication: PREMEDICATION
     Route: 042
  7. CIMETIDINE HCL [Concomitant]
     Indication: PREMEDICATION
     Route: 042
  8. RANITIDINE [Concomitant]
     Indication: PREMEDICATION
     Route: 042
  9. FAMOTIDINE [Concomitant]
     Indication: PREMEDICATION
     Route: 042

REACTIONS (15)
  - ARTHRALGIA [None]
  - COAGULOPATHY [None]
  - DEAFNESS [None]
  - MALIGNANT NEOPLASM PROGRESSION [None]
  - MYALGIA [None]
  - MYOCARDIAL ISCHAEMIA [None]
  - NAUSEA [None]
  - NEPHROPATHY TOXIC [None]
  - NEUTROPENIC SEPSIS [None]
  - PANCYTOPENIA [None]
  - PARALYSIS [None]
  - POLYNEUROPATHY [None]
  - RENAL FAILURE [None]
  - TUMOUR LYSIS SYNDROME [None]
  - VOMITING [None]
